FAERS Safety Report 7059628-5 (Version None)
Quarter: 2010Q4

REPORT INFORMATION
  Report Type: 
  Country: None (occurrence: None)
  Receive Date: 20101025
  Receipt Date: 20101012
  Transmission Date: 20110411
  Serious: Yes (Hospitalization, Other)
  Sender: FDA-Public Use
  Company Number: US-ELI_LILLY_AND_COMPANY-US201010002915

PATIENT
  Sex: Female

DRUGS (2)
  1. ZYPREXA [Suspect]
     Indication: DEPRESSION
     Dosage: 10 MG, DAILY (1/D)
  2. CYMBALTA [Concomitant]

REACTIONS (5)
  - ACCIDENT [None]
  - ANGLE CLOSURE GLAUCOMA [None]
  - CHOLECYSTECTOMY [None]
  - EYE PAIN [None]
  - OFF LABEL USE [None]
